FAERS Safety Report 5480199-9 (Version None)
Quarter: 2007Q4

REPORT INFORMATION
  Report Type: 
  Country: None (occurrence: None)
  Receive Date: 20071009
  Receipt Date: 20071002
  Transmission Date: 20080405
  Serious: Yes (Hospitalization)
  Sender: FDA-Public Use
  Company Number: FRWYE659229MAY06

PATIENT
  Age: 61 Year
  Sex: Male

DRUGS (9)
  1. RAPAMUNE [Suspect]
     Indication: PROPHYLAXIS AGAINST TRANSPLANT REJECTION
     Route: 048
     Dates: end: 20060401
  2. OROCAL VITAMIN D [Concomitant]
     Dosage: 2 UNITS DAILY TOTAL
  3. PAROXETINE [Concomitant]
     Dosage: UNKNOWN
  4. AMLOR [Suspect]
     Indication: HYPERTENSION
     Route: 048
  5. HYPERIUM [Suspect]
     Indication: HYPERTENSION
     Route: 048
  6. EUPRESSYL [Suspect]
     Indication: HYPERTENSION
     Route: 048
  7. LASIX [Suspect]
     Indication: HYPERTENSION
     Route: 048
     Dates: end: 20060413
  8. LEXOMIL [Suspect]
     Indication: ANXIETY
     Dosage: 1 TABLET TOTAL DAILY
     Route: 048
     Dates: end: 20060410
  9. LOVENOX [Concomitant]
     Dosage: UNKNOWN

REACTIONS (4)
  - ASTHENIA [None]
  - DEPRESSION [None]
  - GENERAL PHYSICAL HEALTH DETERIORATION [None]
  - GUILLAIN-BARRE SYNDROME [None]
